FAERS Safety Report 7364762-6 (Version None)
Quarter: 2011Q1

REPORT INFORMATION
  Report Type: 
  Country: None (occurrence: None)
  Receive Date: 20110321
  Receipt Date: 20110311
  Transmission Date: 20110831
  Serious: Yes (Hospitalization, Other)
  Sender: FDA-Public Use
  Company Number: US-CEPHALON-2011001151

PATIENT
  Sex: Female

DRUGS (3)
  1. ANTIEMETICS [Concomitant]
     Indication: CROHN'S DISEASE
  2. FENTANYL CITRATE [Suspect]
     Indication: NECK PAIN
     Route: 002
     Dates: start: 20080101
  3. FENTANYL [Concomitant]
     Indication: PAIN
     Route: 062

REACTIONS (8)
  - PANCREATITIS [None]
  - TOOTH LOSS [None]
  - ABASIA [None]
  - TOOTH DISCOLOURATION [None]
  - PAIN [None]
  - DRUG WITHDRAWAL SYNDROME [None]
  - MYALGIA [None]
  - DENTAL CARIES [None]
